FAERS Safety Report 7998664-9 (Version None)
Quarter: 2011Q4

REPORT INFORMATION
  Report Type: 
  Country: None (occurrence: None)
  Receive Date: 20111221
  Receipt Date: 20111214
  Transmission Date: 20120403
  Serious: Yes (Hospitalization, Disabling, Other)
  Sender: FDA-Public Use
  Company Number: US-MERCK-1108USA00315

PATIENT
  Age: 59 Year
  Sex: Female
  Weight: 79 kg

DRUGS (6)
  1. PREDNISONE TAB [Suspect]
     Indication: POLYMYALGIA RHEUMATICA
     Route: 048
     Dates: start: 19910101
  2. FOSAMAX [Suspect]
     Indication: OSTEOPOROSIS
     Route: 048
     Dates: start: 19990101, end: 20080301
  3. RECLAST [Suspect]
     Route: 051
     Dates: start: 20080101, end: 20100101
  4. FOSAMAX [Suspect]
     Route: 048
     Dates: start: 20100101
  5. FOSAMAX [Suspect]
     Indication: OSTEOPENIA
     Route: 048
     Dates: start: 19990101, end: 20080301
  6. ALENDRONATE SODIUM [Suspect]
     Indication: OSTEOPENIA
     Route: 048
     Dates: start: 20080401, end: 20100801

REACTIONS (20)
  - RADICULITIS [None]
  - PSORIATIC ARTHROPATHY [None]
  - TIBIA FRACTURE [None]
  - RIB FRACTURE [None]
  - NEURALGIA [None]
  - CONVULSION [None]
  - WRIST FRACTURE [None]
  - NEURITIS [None]
  - HYPOTHYROIDISM [None]
  - HAND FRACTURE [None]
  - FEMUR FRACTURE [None]
  - MALIGNANT MELANOMA [None]
  - FOOT FRACTURE [None]
  - ANXIETY [None]
  - HYPERCHOLESTEROLAEMIA [None]
  - TRANSIENT ISCHAEMIC ATTACK [None]
  - SYNCOPE [None]
  - RADIUS FRACTURE [None]
  - INTERVERTEBRAL DISC DEGENERATION [None]
  - FALL [None]
